FAERS Safety Report 13881295 (Version 1)
Quarter: 2017Q3

REPORT INFORMATION
  Report Type: Spontaneous
  Country: US (occurrence: US)
  Receive Date: 20170818
  Receipt Date: 20170818
  Transmission Date: 20171127
  Serious: No
  Sender: FDA-Public Use
  Company Number: US-ENDO PHARMACEUTICALS INC-2017-002881

PATIENT
  Sex: Female
  Weight: 83.9 kg

DRUGS (1)
  1. SUMAVEL DOSEPRO [Suspect]
     Active Substance: SUMATRIPTAN SUCCINATE
     Indication: MIGRAINE
     Dosage: 6 MG, PRESCRIBED 3 BOXES OF 6 INJECTORS PER MONTH
     Route: 065
     Dates: start: 2006

REACTIONS (7)
  - Injection site mass [Unknown]
  - Injection site pain [Unknown]
  - Injection site injury [Unknown]
  - Device malfunction [Unknown]
  - Injection site scar [Not Recovered/Not Resolved]
  - Injection site haemorrhage [Unknown]
  - Accidental exposure to product [Unknown]

NARRATIVE: CASE EVENT DATE: 2016
